FAERS Safety Report 17105073 (Version 2)
Quarter: 2019Q4

REPORT INFORMATION
  Report Type: Spontaneous
  Country: US (occurrence: US)
  Receive Date: 20191203
  Receipt Date: 20191205
  Transmission Date: 20200122
  Serious: No
  Sender: FDA-Public Use
  Company Number: US-GW PHARMA-201910USGW3980

PATIENT

DRUGS (2)
  1. EPIDIOLEX [Suspect]
     Active Substance: CANNABIDIOL
     Indication: SEIZURE
     Dosage: 30 MILLIGRAM, BID
     Route: 048
     Dates: start: 20190612, end: 20191018
  2. EPIDIOLEX [Suspect]
     Active Substance: CANNABIDIOL
     Dosage: 60 MILLIGRAM, BID
     Route: 048
     Dates: start: 20191019

REACTIONS (2)
  - Joint range of motion decreased [Recovering/Resolving]
  - Muscle spasticity [Unknown]

NARRATIVE: CASE EVENT DATE: 20190819
